FAERS Safety Report 4798949-3 (Version None)
Quarter: 2005Q4

REPORT INFORMATION
  Report Type: 
  Country: None (occurrence: None)
  Receive Date: 20051014
  Receipt Date: 20051006
  Transmission Date: 20060501
  Serious: Yes (Hospitalization)
  Sender: FDA-Public Use
  Company Number: FR-ABBOTT-05P-056-0313064-00

PATIENT
  Age: 36 Year
  Sex: Female

DRUGS (1)
  1. DEPAKENE [Suspect]
     Indication: EPILEPSY
     Route: 048

REACTIONS (8)
  - CAESAREAN SECTION [None]
  - DRUG EXPOSURE DURING PREGNANCY [None]
  - METRORRHAGIA [None]
  - PLACENTAL DISORDER [None]
  - POLYHYDRAMNIOS [None]
  - PREMATURE LABOUR [None]
  - THREATENED LABOUR [None]
  - TOCOLYSIS [None]
